FAERS Safety Report 24888548 (Version 1)
Quarter: 2025Q1

REPORT INFORMATION
  Report Type: Spontaneous
  Country: US (occurrence: US)
  Receive Date: 20250127
  Receipt Date: 20250127
  Transmission Date: 20250409
  Serious: Yes (Other)
  Sender: COOPERSURGICAL
  Company Number: US-COOPERSURGICAL, INC.-2025CPS000391

PATIENT

DRUGS (1)
  1. PARAGARD T 380A [Suspect]
     Active Substance: COPPER

REACTIONS (3)
  - Injury [Not Recovered/Not Resolved]
  - Foetal exposure during pregnancy [Recovered/Resolved]
  - Unevaluable event [Not Recovered/Not Resolved]
